FAERS Safety Report 12908421 (Version 1)
Quarter: 2016Q4

REPORT INFORMATION
  Report Type: Spontaneous
  Country: US (occurrence: US)
  Receive Date: 20161103
  Receipt Date: 20161103
  Transmission Date: 20170207
  Serious: Yes (Other)
  Sender: FDA-Public Use
  Company Number: US-ELI_LILLY_AND_COMPANY-US201607007884

PATIENT
  Sex: Female

DRUGS (5)
  1. CYMBALTA [Suspect]
     Active Substance: DULOXETINE HYDROCHLORIDE
     Dosage: 60 MG, UNK
     Route: 048
  2. CYMBALTA [Suspect]
     Active Substance: DULOXETINE HYDROCHLORIDE
     Dosage: 60 MG, QD
     Route: 048
     Dates: end: 20120216
  3. GEODON [Concomitant]
     Active Substance: ZIPRASIDONE HYDROCHLORIDE\ZIPRASIDONE MESYLATE
     Dosage: 40 MG, BID
     Route: 048
  4. CYMBALTA [Suspect]
     Active Substance: DULOXETINE HYDROCHLORIDE
     Indication: PRODUCT USED FOR UNKNOWN INDICATION
     Dosage: UNK UNK, UNKNOWN
     Route: 048
     Dates: start: 200905
  5. LYRICA [Concomitant]
     Active Substance: PREGABALIN
     Dosage: UNK
     Dates: start: 20091202

REACTIONS (23)
  - Hallucination, auditory [Unknown]
  - Fatigue [Unknown]
  - Fear [Unknown]
  - Insomnia [Unknown]
  - Decreased appetite [Unknown]
  - Asthenia [Unknown]
  - Depressed mood [Unknown]
  - Dyspnoea [Unknown]
  - Mood swings [Unknown]
  - Drug withdrawal syndrome [Unknown]
  - Anxiety [Unknown]
  - Vomiting [Unknown]
  - Crying [Unknown]
  - Feelings of worthlessness [Unknown]
  - Helplessness [Unknown]
  - Muscle twitching [Unknown]
  - Visual impairment [Unknown]
  - Irritability [Unknown]
  - Mental impairment [Unknown]
  - Musculoskeletal chest pain [Unknown]
  - Nausea [Unknown]
  - Headache [Unknown]
  - Suicidal ideation [Unknown]
